FAERS Safety Report 11728687 (Version 6)
Quarter: 2016Q3

REPORT INFORMATION
  Report Type: Spontaneous
  Country: FR (occurrence: FR)
  Receive Date: 20151112
  Receipt Date: 20160916
  Transmission Date: 20161109
  Serious: Yes (Hospitalization, Other)
  Sender: FDA-Public Use
  Company Number: FR-ASTRAZENECA-2015SE99100

PATIENT
  Age: 25306 Day
  Sex: Female
  Weight: 49 kg

DRUGS (21)
  1. LYNPARZA [Suspect]
     Active Substance: OLAPARIB
     Indication: OVARIAN CANCER
     Route: 048
     Dates: start: 20150915, end: 2015
  2. ZOPICLONE [Concomitant]
     Active Substance: ZOPICLONE
     Dates: start: 20160720
  3. THERALENE [Suspect]
     Active Substance: TRIMEPRAZINE
     Indication: SLEEP DISORDER
     Route: 048
     Dates: start: 20160720
  4. XEROQUEL [Interacting]
     Active Substance: QUETIAPINE FUMARATE
  5. ABILIFY [Concomitant]
     Active Substance: ARIPIPRAZOLE
     Dates: start: 20160810
  6. DEPAMIDE [Interacting]
     Active Substance: VALPROMIDE
     Indication: MENTAL DISORDER
     Dosage: 300 MG 1 TABLET IN THE MORNING AND 2 TABLETS IN THE EVENING
     Route: 048
     Dates: start: 2013
  7. DEPAMIDE [Interacting]
     Active Substance: VALPROMIDE
     Indication: BIPOLAR DISORDER
     Dosage: 300 MG 1 TABLET IN THE MORNING AND 2 TABLETS IN THE EVENING
     Route: 048
     Dates: start: 2013
  8. THERALENE [Suspect]
     Active Substance: TRIMEPRAZINE
     Indication: MENTAL DISORDER
     Route: 048
     Dates: start: 20160720
  9. TRANXENE T-TAB [Suspect]
     Active Substance: CLORAZEPATE DIPOTASSIUM
     Indication: ANXIETY
     Route: 048
     Dates: start: 2013, end: 20160719
  10. TRANXENE T-TAB [Suspect]
     Active Substance: CLORAZEPATE DIPOTASSIUM
     Indication: ANXIETY
     Dosage: 1 TABLET IN THE MORNING AND AT NOON, AND THREE IN THE EVENING
     Route: 048
     Dates: start: 20160720
  11. ORACILLINE [Suspect]
     Active Substance: PENICILLIN V
     Indication: PROPHYLAXIS
     Route: 065
  12. ABILIFY [Concomitant]
     Active Substance: ARIPIPRAZOLE
     Dates: start: 20160801
  13. LYNPARZA [Interacting]
     Active Substance: OLAPARIB
     Indication: OVARIAN CANCER
     Route: 048
     Dates: start: 20151007
  14. DEPAMIDE [Interacting]
     Active Substance: VALPROMIDE
     Indication: MENTAL DISORDER
     Dosage: 1 TABLET IN THE MORNING AND IN THE EVENING
     Route: 048
     Dates: start: 20160801
  15. NOCTAMIDE [Suspect]
     Active Substance: LORMETAZEPAM
     Indication: SLEEP DISORDER
     Route: 048
     Dates: start: 2013, end: 20160725
  16. ABILIFY [Concomitant]
     Active Substance: ARIPIPRAZOLE
     Dates: start: 20160804
  17. DEPAMIDE [Interacting]
     Active Substance: VALPROMIDE
     Indication: BIPOLAR DISORDER
     Dosage: 1 TABLET IN THE MORNING AND IN THE EVENING
     Route: 048
     Dates: start: 20160801
  18. IXEL [Suspect]
     Active Substance: MILNACIPRAN HYDROCHLORIDE
     Indication: BIPOLAR DISORDER
     Dosage: TWO TABLETS IN THE MORNING AND IN THE EVENING
     Route: 048
     Dates: start: 2013, end: 20160810
  19. ESCITALOPRAM [Concomitant]
     Active Substance: ESCITALOPRAM OXALATE
     Dates: start: 20160810
  20. THERALENE [Suspect]
     Active Substance: TRIMEPRAZINE
     Indication: SLEEP DISORDER
     Route: 048
     Dates: start: 2013
  21. THERALENE [Suspect]
     Active Substance: TRIMEPRAZINE
     Indication: MENTAL DISORDER
     Route: 048
     Dates: start: 2013

REACTIONS (9)
  - Drug interaction [Recovered/Resolved]
  - Suicidal ideation [Not Recovered/Not Resolved]
  - Neutropenia [Recovered/Resolved]
  - Terminal insomnia [Not Recovered/Not Resolved]
  - Anxiety [Not Recovered/Not Resolved]
  - Flatulence [Unknown]
  - Bipolar disorder [Not Recovered/Not Resolved]
  - Activities of daily living impaired [Not Recovered/Not Resolved]
  - Ovarian cancer recurrent [Not Recovered/Not Resolved]

NARRATIVE: CASE EVENT DATE: 20150615
